FAERS Safety Report 9701991 (Version 1)
Quarter: 2013Q4

REPORT INFORMATION
  Report Type: Spontaneous
  Country: GB (occurrence: GB)
  Receive Date: 20131121
  Receipt Date: 20131121
  Transmission Date: 20140711
  Serious: Yes (Other)
  Sender: FDA-Public Use
  Company Number: GB-VERTEX PHARMACEUTICALS INC-2013-011232

PATIENT
  Age: 45 Year
  Sex: Male

DRUGS (3)
  1. INCIVO [Suspect]
     Indication: HEPATITIS
     Dosage: 750 MG, TID
  2. INTERFERON [Suspect]
     Indication: HEPATITIS
  3. RIBAVIRIN [Suspect]
     Indication: HEPATITIS

REACTIONS (2)
  - Depressed mood [Unknown]
  - Pruritus [Unknown]
